FAERS Safety Report 4330728-3 (Version None)
Quarter: 2004Q2

REPORT INFORMATION
  Report Type: 
  Country: None (occurrence: None)
  Receive Date: 20040401
  Receipt Date: 20040401
  Transmission Date: 20050107
  Serious: Yes (Death)
  Sender: FDA-Public Use
  Company Number: None

PATIENT
  Age: 51 Year
  Sex: Female
  Weight: 70 kg

DRUGS (5)
  1. HYCAMTIN [Suspect]
     Indication: OVARIAN CANCER
     Dosage: 4 MG/M2 (6.5MG)
     Dates: start: 20030321
  2. KYTRIL [Concomitant]
  3. GLYBURIDE [Concomitant]
  4. PEPCID [Concomitant]
  5. COUMADIN [Concomitant]

REACTIONS (5)
  - ANAEMIA [None]
  - HYPOTENSION [None]
  - NEUTROPENIA [None]
  - SEPTIC SHOCK [None]
  - THROMBOCYTOPENIA [None]
